FAERS Safety Report 5521977-7 (Version None)
Quarter: 2007Q4

REPORT INFORMATION
  Report Type: 
  Country: None (occurrence: None)
  Receive Date: 20071120
  Receipt Date: 20070712
  Transmission Date: 20080405
  Serious: No
  Sender: FDA-Public Use
  Company Number: US-BRISTOL-MYERS SQUIBB COMPANY-13844253

PATIENT
  Age: 81 Year
  Sex: Female

DRUGS (5)
  1. AVAPRO-HCT TABS 300 MG/12.5 MG [Suspect]
     Indication: HYPERTENSION
     Dosage: 300/12.5 MG DAILY
  2. TOPROL-XL [Concomitant]
  3. NORVASC [Concomitant]
  4. GABAPENTIN [Concomitant]
  5. CALCIUM [Concomitant]

REACTIONS (1)
  - CHOKING SENSATION [None]
